FAERS Safety Report 23128443 (Version 2)
Quarter: 2024Q1

REPORT INFORMATION
  Report Type: Report from Study
  Country: US (occurrence: US)
  Receive Date: 20231031
  Receipt Date: 20240326
  Transmission Date: 20240410
  Serious: No
  Sender: FDA-Public Use
  Company Number: US-BIOVITRUM-2023-US-017070

PATIENT
  Age: 66 Year
  Sex: Male

DRUGS (3)
  1. DOPTELET [Suspect]
     Active Substance: AVATROMBOPAG MALEATE
     Indication: Thrombocytopenia
     Dosage: 10 MG DAILY
     Route: 048
     Dates: start: 20230609
  2. DOPTELET [Suspect]
     Active Substance: AVATROMBOPAG MALEATE
     Dosage: 20MG ALTERNATING WITH 10MG EVERY OTHER DAY.
     Route: 048
  3. DOPTELET [Suspect]
     Active Substance: AVATROMBOPAG MALEATE
     Dosage: 40 MG DAILY (TWO 20 MG TABLETS)
     Route: 048
     Dates: start: 20230609

REACTIONS (3)
  - Drug ineffective [Unknown]
  - Platelet count abnormal [Unknown]
  - Platelet count decreased [Unknown]
